FAERS Safety Report 5188059-8 (Version None)
Quarter: 2006Q4

REPORT INFORMATION
  Report Type: 
  Country: None (occurrence: None)
  Receive Date: 20061214
  Receipt Date: 20061207
  Transmission Date: 20070319
  Serious: Yes (Hospitalization)
  Sender: FDA-Public Use
  Company Number: 2006-06115

PATIENT
  Age: 74 Year
  Sex: Male

DRUGS (2)
  1. ALPRAZOLAM [Suspect]
     Indication: DEPRESSION
     Dosage: 1.2 MG, DAILY X 10 DAYS, ORAL
     Route: 048
     Dates: start: 20060101, end: 20060101
  2. PAROXETINE [Suspect]
     Indication: DEPRESSION
     Dosage: 20 MG, DAILY X 10 DAYS, ORAL
     Route: 048
     Dates: start: 20060101, end: 20060101

REACTIONS (1)
  - NEUROLEPTIC MALIGNANT SYNDROME [None]
